FAERS Safety Report 4880578-4 (Version None)
Quarter: 2006Q1

REPORT INFORMATION
  Report Type: 
  Country: None (occurrence: None)
  Receive Date: 20060113
  Receipt Date: 20050824
  Transmission Date: 20060701
  Serious: Yes (Hospitalization, Disabling)
  Sender: FDA-Public Use
  Company Number: US-MERCK-0508USA04314

PATIENT
  Age: 61 Year
  Sex: Male
  Weight: 92 kg

DRUGS (7)
  1. VIOXX [Suspect]
     Indication: PAIN
     Route: 048
     Dates: start: 20000201, end: 20041001
  2. VIOXX [Suspect]
     Route: 065
  3. VIOXX [Suspect]
     Indication: ARTHRITIS
     Route: 048
     Dates: start: 20000201, end: 20041001
  4. VIOXX [Suspect]
     Route: 065
  5. ADVIL [Concomitant]
     Route: 065
  6. TENORMIN [Concomitant]
     Indication: PALPITATIONS
     Route: 048
  7. ALLEGRA [Concomitant]
     Route: 065

REACTIONS (15)
  - ACUTE MYOCARDIAL INFARCTION [None]
  - ANXIETY [None]
  - ARRHYTHMIA [None]
  - ARTERIOSCLEROSIS [None]
  - BRADYCARDIA [None]
  - DYSPEPSIA [None]
  - HYPOTENSION [None]
  - LOW DENSITY LIPOPROTEIN INCREASED [None]
  - MUSCULOSKELETAL DISORDER [None]
  - PALPITATIONS [None]
  - SLEEP APNOEA SYNDROME [None]
  - SURGERY [None]
  - TREATMENT NONCOMPLIANCE [None]
  - VENTRICULAR EXTRASYSTOLES [None]
  - VERTIGO [None]
